FAERS Safety Report 23594835 (Version 7)
Quarter: 2024Q4

REPORT INFORMATION
  Report Type: Spontaneous
  Country: CA (occurrence: CA)
  Receive Date: 20240305
  Receipt Date: 20241123
  Transmission Date: 20250115
  Serious: Yes (Other)
  Sender: CELLTRION
  Company Number: CA-CELLTRION INC.-2023CA021535

PATIENT

DRUGS (7)
  1. INFLECTRA [Suspect]
     Active Substance: INFLIXIMAB-DYYB
     Indication: Colitis ulcerative
     Dosage: 5 MG/KG, Q 0,2,6, THEN EVERY 8 WEEKS
     Route: 042
     Dates: start: 20231128
  2. INFLECTRA [Suspect]
     Active Substance: INFLIXIMAB-DYYB
     Dosage: 5 MG/KG, Q 0,2,6, THEN EVERY 8 WEEKS
     Route: 042
     Dates: start: 20240110
  3. INFLECTRA [Suspect]
     Active Substance: INFLIXIMAB-DYYB
     Dosage: 440 MG, AFTER 14 WEEKS AND 1 DAY, (10MG/KG, RE-INDUCTION FOLLOWED BY Q 8 WEEKS MAINTENANCE)
     Route: 042
     Dates: start: 20240418
  4. INFLECTRA [Suspect]
     Active Substance: INFLIXIMAB-DYYB
     Dosage: 440 MG, AFTER 14 WEEKS AND 1 DAY, (10MG/KG, RE-INDUCTION FOLLOWED BY Q 8 WEEKS MAINTENANCE)
     Route: 042
     Dates: start: 20240418
  5. INFLECTRA [Suspect]
     Active Substance: INFLIXIMAB-DYYB
     Dosage: 10 MG/KG, EVERY 8 WEEKS
     Route: 042
     Dates: start: 20240918
  6. INFLECTRA [Suspect]
     Active Substance: INFLIXIMAB-DYYB
     Dosage: 440 MG (10MG/KG), AFTER 8 WEEKS AND 1 DAY (RE-INDUCTION FOLLOWED BY Q 8 WEEKS MAINTENANCE)
     Route: 042
     Dates: start: 20241114
  7. METHOTREXATE [Concomitant]
     Active Substance: METHOTREXATE
     Dosage: 1 DF

REACTIONS (14)
  - Condition aggravated [Recovering/Resolving]
  - Uveitis [Unknown]
  - Therapeutic response shortened [Unknown]
  - Therapeutic product effect incomplete [Unknown]
  - Sinusitis [Not Recovered/Not Resolved]
  - Eye infection [Recovered/Resolved]
  - Nasopharyngitis [Not Recovered/Not Resolved]
  - Eye inflammation [Unknown]
  - Malaise [Not Recovered/Not Resolved]
  - Iritis [Unknown]
  - Off label use [Unknown]
  - Off label use [Unknown]
  - Intentional product use issue [Unknown]
  - Inappropriate schedule of product administration [Unknown]

NARRATIVE: CASE EVENT DATE: 20240101
